FAERS Safety Report 12238772 (Version 1)
Quarter: 2016Q2

REPORT INFORMATION
  Report Type: Spontaneous
  Country: US (occurrence: US)
  Receive Date: 20160405
  Receipt Date: 20160405
  Transmission Date: 20160815
  Serious: No
  Sender: FDA-Public Use
  Company Number: US-TEVA-640173USA

PATIENT
  Age: 68 Year
  Sex: Female
  Weight: 85 kg

DRUGS (1)
  1. WARFARIN [Suspect]
     Active Substance: WARFARIN

REACTIONS (2)
  - Urticaria [Not Recovered/Not Resolved]
  - Product substitution issue [Unknown]
